FAERS Safety Report 23315663 (Version 1)
Quarter: 2023Q4

REPORT INFORMATION
  Report Type: Report from Study
  Country: US (occurrence: US)
  Receive Date: 20231219
  Receipt Date: 20231219
  Transmission Date: 20240110
  Serious: No
  Sender: FDA-Public Use
  Company Number: US-HLS-202300443

PATIENT
  Age: 40 Year
  Sex: Male
  Weight: 103 kg

DRUGS (1)
  1. CLOZAPINE [Suspect]
     Active Substance: CLOZAPINE
     Indication: Schizoaffective disorder
     Dosage: 100MG TWICE DAILY
     Route: 048
     Dates: start: 20230509

REACTIONS (1)
  - Off label use [Not Recovered/Not Resolved]
